FAERS Safety Report 7923445-1 (Version None)
Quarter: 2011Q4

REPORT INFORMATION
  Report Type: 
  Country: None (occurrence: None)
  Receive Date: 20111117
  Receipt Date: 20110203
  Transmission Date: 20120403
  Serious: No
  Sender: FDA-Public Use
  Company Number: US-AMGEN-USASP2011006698

PATIENT
  Age: 52 Year
  Sex: Male

DRUGS (1)
  1. ENBREL [Suspect]
     Indication: PSORIATIC ARTHROPATHY
     Dosage: 50 MG, QWK
     Dates: start: 20050214

REACTIONS (8)
  - DRUG EFFECT DECREASED [None]
  - NASOPHARYNGITIS [None]
  - INJECTION SITE PAIN [None]
  - PROCEDURAL PAIN [None]
  - PSORIASIS [None]
  - MUSCULOSKELETAL PAIN [None]
  - TENDON PAIN [None]
  - HYPOKINESIA [None]
